FAERS Safety Report 6303170-3 (Version None)
Quarter: 2009Q3

REPORT INFORMATION
  Report Type: 
  Country: None (occurrence: None)
  Receive Date: 20090810
  Receipt Date: 20090407
  Transmission Date: 20100115
  Serious: No
  Sender: FDA-Public Use
  Company Number: A0777582A

PATIENT
  Age: 56 Year
  Sex: Female

DRUGS (8)
  1. PAROXETINE HCL [Suspect]
     Indication: ANXIETY DISORDER
     Dosage: 25MG PER DAY
     Route: 048
     Dates: start: 20080101
  2. ADDERALL 10 [Concomitant]
  3. TRAZODONE HCL [Concomitant]
  4. CELEBREX [Concomitant]
  5. FOSAMAX [Concomitant]
  6. UNKNOWN MEDICATION [Concomitant]
  7. BUSPAR [Concomitant]
  8. CLONAZEPAM [Concomitant]

REACTIONS (1)
  - DRUG INEFFECTIVE [None]
